FAERS Safety Report 7151282-7 (Version None)
Quarter: 2010Q4

REPORT INFORMATION
  Report Type: 
  Country: None (occurrence: None)
  Receive Date: 20101207
  Receipt Date: 20101207
  Transmission Date: 20110411
  Serious: Yes (Death)
  Sender: FDA-Public Use
  Company Number: None

PATIENT
  Age: 37 Year
  Sex: Female
  Weight: 56.6996 kg

DRUGS (8)
  1. DEPAKOTE ER [Suspect]
     Indication: CONVULSION
     Dosage: 250MG TWICE DAILY PO
     Route: 048
     Dates: start: 20101101, end: 20101108
  2. DEPAKOTE ER [Suspect]
     Indication: CONVULSION
     Dosage: 500 MG TWICE DAILY PO
     Route: 048
     Dates: start: 20101108, end: 20101111
  3. PHENYTOIN [Concomitant]
  4. NEXIUM [Concomitant]
  5. OLANZAPINE [Concomitant]
  6. LORAZEPAM [Concomitant]
  7. GEODON [Concomitant]
  8. ZOLPIDEM [Concomitant]

REACTIONS (10)
  - ACUTE HEPATIC FAILURE [None]
  - AGITATION [None]
  - BRAIN OEDEMA [None]
  - CHOLECYSTITIS [None]
  - DRUG SCREEN POSITIVE [None]
  - ENCEPHALOPATHY [None]
  - FEBRILE CONVULSION [None]
  - HEPATOTOXICITY [None]
  - PSYCHOTIC DISORDER [None]
  - URINARY INCONTINENCE [None]
